FAERS Safety Report 8244551-0 (Version None)
Quarter: 2012Q1

REPORT INFORMATION
  Report Type: 
  Country: None (occurrence: None)
  Receive Date: 20120329
  Receipt Date: 20120314
  Transmission Date: 20120608
  Serious: Yes (Disabling)
  Sender: FDA-Public Use
  Company Number: CA-CELGENEUS-028-21880-12031666

PATIENT
  Sex: Female
  Weight: 61.6 kg

DRUGS (13)
  1. PREDNISONE TAB [Suspect]
     Indication: MULTIPLE MYELOMA
     Route: 065
     Dates: start: 20090701, end: 20110101
  2. DEXAMETHASONE [Suspect]
     Indication: MULTIPLE MYELOMA
     Dosage: 40 MILLIGRAM
     Route: 065
     Dates: start: 20110301, end: 20110601
  3. MELPHALAN HYDROCHLORIDE [Suspect]
     Indication: MULTIPLE MYELOMA
     Dosage: 10 MILLIGRAM
     Route: 065
     Dates: start: 20090701, end: 20110101
  4. MAGNESIUM [Concomitant]
     Route: 065
  5. PAMIDRONATE DISODIUM [Concomitant]
     Dosage: 90 MILLIGRAM
     Route: 041
  6. ASPIRIN [Concomitant]
     Dosage: 150 MILLIGRAM
     Route: 065
  7. REVLIMID [Suspect]
     Indication: MULTIPLE MYELOMA
     Dosage: 10 MILLIGRAM
     Route: 048
     Dates: start: 20110301, end: 20110601
  8. GLUCONORM [Concomitant]
     Route: 065
  9. ENALAPRIL [Concomitant]
     Dosage: 10/25
     Route: 065
  10. RANITIDINE [Concomitant]
     Dosage: 150 MILLIGRAM
     Route: 065
  11. LOVAZA [Concomitant]
     Route: 065
  12. THALIDOMIDE [Suspect]
     Indication: MULTIPLE MYELOMA
     Dosage: 100 MILLIGRAM
     Route: 065
     Dates: start: 20100601, end: 20101001
  13. MULTI-VITAMINS [Concomitant]
     Route: 065

REACTIONS (1)
  - MYELODYSPLASTIC SYNDROME [None]
